FAERS Safety Report 4451126-8 (Version None)
Quarter: 2004Q3

REPORT INFORMATION
  Report Type: 
  Country: None (occurrence: None)
  Receive Date: 20040913
  Receipt Date: 20040611
  Transmission Date: 20050211
  Serious: No
  Sender: FDA-Public Use
  Company Number: 2004-BP-04660BP(0)

PATIENT
  Age: 83 Year
  Sex: Female

DRUGS (4)
  1. SPIRIVA [Suspect]
     Indication: CHRONIC OBSTRUCTIVE AIRWAYS DISEASE
     Dosage: (18 MCG), IH
  2. FORADIL [Concomitant]
  3. FLOVENT (FLUTICASONE HYDROCHLORIDE) [Concomitant]
  4. ALBUTEROL [Concomitant]

REACTIONS (2)
  - HEART RATE INCREASED [None]
  - VISUAL DISTURBANCE [None]
